FAERS Safety Report 9416875 (Version 1)
Quarter: 2013Q3

REPORT INFORMATION
  Report Type: Spontaneous
  Country: US (occurrence: None)
  Receive Date: 20130719
  Receipt Date: 20130719
  Transmission Date: 20140515
  Serious: Yes (Other)
  Sender: FDA-Public Use
  Company Number: VAL_02643_2013

PATIENT
  Age: 76 Year
  Sex: Male
  Weight: 96.7 kg

DRUGS (14)
  1. METOPROLOL [Suspect]
     Indication: HYPERTENSION
     Dates: end: 20130603
  2. ZOMETA (NOT SPECIFIED) [Suspect]
     Indication: PLASMA CELL MYELOMA
  3. COZAAR [Suspect]
     Indication: HYPERTENSION
     Route: 048
     Dates: end: 20130603
  4. REVLIMID [Concomitant]
  5. VELCADE [Concomitant]
  6. DECADRON [Concomitant]
  7. OMEPRAZOLE [Concomitant]
  8. HYDROCODONE [Concomitant]
  9. CLOBETASOL [Concomitant]
  10. ECONAZOLE [Concomitant]
  11. LEVOTHYROXIN [Concomitant]
  12. ALLOPURINOL [Concomitant]
  13. NIZATIDINE [Concomitant]
  14. VIT D [Concomitant]

REACTIONS (2)
  - Blood pressure decreased [None]
  - Decreased appetite [None]
